FAERS Safety Report 4755700-0 (Version None)
Quarter: 2005Q3

REPORT INFORMATION
  Report Type: 
  Country: None (occurrence: None)
  Receive Date: 20050830
  Receipt Date: 20050707
  Transmission Date: 20060218
  Serious: No
  Sender: FDA-Public Use
  Company Number: US-BRISTOL-MYERS SQUIBB COMPANY-13030523

PATIENT
  Age: 27 Year
  Sex: Female

DRUGS (6)
  1. ABILIFY [Suspect]
     Dates: start: 20040101
  2. LAMICTAL [Concomitant]
  3. TRAZODONE HCL [Concomitant]
  4. WELLBUTRIN SR [Concomitant]
  5. LEXAPRO [Concomitant]
  6. AMBIEN [Concomitant]

REACTIONS (1)
  - WEIGHT INCREASED [None]
